FAERS Safety Report 13043774 (Version 2)
Quarter: 2017Q1

REPORT INFORMATION
  Report Type: Spontaneous
  Country: US (occurrence: US)
  Receive Date: 20161220
  Receipt Date: 20170227
  Transmission Date: 20170428
  Serious: No
  Sender: FDA-Public Use
  Company Number: US-ASTRAZENECA-2016SF30911

PATIENT
  Age: 978 Month
  Sex: Female
  Weight: 46.3 kg

DRUGS (1)
  1. EKLIRA [Suspect]
     Active Substance: ACLIDINIUM BROMIDE
     Indication: CHRONIC OBSTRUCTIVE PULMONARY DISEASE
     Route: 055
     Dates: start: 2012

REACTIONS (6)
  - Asthma [Unknown]
  - Visual impairment [Unknown]
  - Mental impairment [Unknown]
  - Intentional device misuse [Unknown]
  - Product quality issue [Unknown]
  - Anger [Unknown]

NARRATIVE: CASE EVENT DATE: 201610
